FAERS Safety Report 20441236 (Version 1)
Quarter: 2022Q1

REPORT INFORMATION
  Report Type: Spontaneous
  Country: US (occurrence: US)
  Receive Date: 20220208
  Receipt Date: 20220208
  Transmission Date: 20220423
  Serious: Yes (Hospitalization, Other)
  Sender: FDA-Public Use
  Company Number: US-NOVOPROD-889000

PATIENT
  Sex: Female

DRUGS (1)
  1. OZEMPIC [Suspect]
     Active Substance: SEMAGLUTIDE
     Indication: Product used for unknown indication
     Dosage: 0.25 MG
     Route: 058
     Dates: start: 2021, end: 202111

REACTIONS (6)
  - Pneumothorax [Unknown]
  - Medical induction of coma [Recovered/Resolved]
  - Dehydration [Unknown]
  - Feeding disorder [Unknown]
  - Fluid intake reduced [Unknown]
  - Lethargy [Unknown]

NARRATIVE: CASE EVENT DATE: 20210101
